FAERS Safety Report 10052878 (Version 2)
Quarter: 2014Q2

REPORT INFORMATION
  Report Type: Spontaneous
  Country: FR (occurrence: FR)
  Receive Date: 20140402
  Receipt Date: 20140408
  Transmission Date: 20141212
  Serious: Yes (Hospitalization)
  Sender: FDA-Public Use
  Company Number: FR-ASTRAZENECA-2014SE21469

PATIENT
  Age: 77 Year
  Sex: Male

DRUGS (16)
  1. DIPRIVAN [Suspect]
     Dosage: ONCE/SINGLE ADMINISTRATION
     Route: 042
     Dates: start: 20140113, end: 20140113
  2. DIPRIVAN [Suspect]
     Dosage: ONCE/SINGLE ADMINISTRATION
     Route: 042
     Dates: start: 20140122, end: 20140122
  3. TAHOR [Suspect]
     Route: 048
     Dates: end: 20140123
  4. INEXIUM [Concomitant]
  5. JANUVIA [Concomitant]
  6. AMAREL [Concomitant]
  7. KARDEGIC [Concomitant]
  8. PREVISCAN [Concomitant]
  9. CARDENSIEL [Concomitant]
  10. LASILIX [Concomitant]
  11. CORDARONE [Concomitant]
  12. KALEORID [Concomitant]
  13. ATARAX [Concomitant]
  14. CLAMOXYL [Concomitant]
  15. TOPALGIC [Concomitant]
  16. PRIMPERAN [Concomitant]

REACTIONS (1)
  - Rhabdomyolysis [Unknown]
